FAERS Safety Report 17311256 (Version 1)
Quarter: 2020Q1

REPORT INFORMATION
  Report Type: Spontaneous
  Country: US (occurrence: US)
  Receive Date: 20200123
  Receipt Date: 20200123
  Transmission Date: 20200409
  Serious: No
  Sender: FDA-Public Use
  Company Number: US-ROCHE-2389337

PATIENT
  Age: 53 Year
  Sex: Female
  Weight: 68.1 kg

DRUGS (2)
  1. RITUXAN [Suspect]
     Active Substance: RITUXIMAB
     Route: 042
     Dates: start: 20190816
  2. RITUXAN [Suspect]
     Active Substance: RITUXIMAB
     Indication: HAEMOLYTIC ANAEMIA
     Dosage: ONGOING: YES
     Route: 042
     Dates: start: 20190809

REACTIONS (4)
  - Arthralgia [Recovered/Resolved]
  - Intentional product use issue [Unknown]
  - Immobile [Recovered/Resolved]
  - Off label use [Unknown]

NARRATIVE: CASE EVENT DATE: 20190817
